FAERS Safety Report 4688648-0 (Version None)
Quarter: 2005Q2

REPORT INFORMATION
  Report Type: 
  Country: None (occurrence: None)
  Receive Date: 20050610
  Receipt Date: 20050610
  Transmission Date: 20051028
  Serious: Yes (Other)
  Sender: FDA-Public Use
  Company Number: None

PATIENT
  Sex: Female
  Weight: 50.8 kg

DRUGS (3)
  1. CYTARBINE [Suspect]
     Indication: ACUTE MYELOID LEUKAEMIA
     Dosage: 100 MG/M2/DAY CIV ON DAYS 1-7
     Route: 042
     Dates: start: 20050527
  2. DAUNOMYCIN [Suspect]
     Indication: ACUTE MYELOID LEUKAEMIA
     Dosage: 90 MG /M2 IV OVER 5-10 MIN ON DAYS 1,2, AND 3
     Route: 042
     Dates: start: 20050527
  3. ETOPOSIDE [Suspect]
     Indication: ACUTE MYELOID LEUKAEMIA
     Dosage: 100 MG/M2 IV OVER 2 HOURS ON DAYS 1,2, AND 3
     Route: 042
     Dates: start: 20050527

REACTIONS (2)
  - CARDIO-RESPIRATORY ARREST [None]
  - CONVULSION [None]
